FAERS Safety Report 6821580-2 (Version None)
Quarter: 2010Q3

REPORT INFORMATION
  Report Type: 
  Country: None (occurrence: None)
  Receive Date: 20100707
  Receipt Date: 20090327
  Transmission Date: 20110219
  Serious: No
  Sender: FDA-Public Use
  Company Number: US-PFIZER INC-2009191037

PATIENT
  Sex: Female
  Weight: 43.492 kg

DRUGS (12)
  1. ZOLOFT [Suspect]
  2. IBANDRONIC ACID [Suspect]
     Indication: OSTEOPOROSIS
     Dosage: UNK
     Dates: end: 20080211
  3. IBANDRONIC ACID [Suspect]
     Dosage: UNK
     Route: 042
     Dates: start: 20081230
  4. ZANTAC [Concomitant]
  5. ALUDROX ^WYETH^ [Concomitant]
  6. KLONOPIN [Concomitant]
     Dosage: UNK
     Dates: start: 20060712
  7. OGEN [Concomitant]
     Dosage: UNK
     Dates: start: 20050825
  8. MULTI-VITAMINS [Concomitant]
  9. VITAMIN E [Concomitant]
  10. VITAMIN C [Concomitant]
  11. CITRACAL + D [Concomitant]
  12. PREVACID [Concomitant]
     Indication: GASTROOESOPHAGEAL REFLUX DISEASE

REACTIONS (7)
  - ARTHRALGIA [None]
  - BACK PAIN [None]
  - BONE PAIN [None]
  - MUSCULOSKELETAL PAIN [None]
  - TOOTHACHE [None]
  - UNEVALUABLE EVENT [None]
  - VISION BLURRED [None]
